FAERS Safety Report 22365465 (Version 3)
Quarter: 2023Q4

REPORT INFORMATION
  Report Type: Report from Study
  Country: US (occurrence: US)
  Receive Date: 20230525
  Receipt Date: 20231128
  Transmission Date: 20240110
  Serious: Yes (Life-Threatening, Other)
  Sender: FDA-Public Use
  Company Number: US-UCBSA-2023009059

PATIENT
  Sex: Female
  Weight: 64 kg

DRUGS (3)
  1. BRIVARACETAM [Suspect]
     Active Substance: BRIVARACETAM
     Indication: Seizure
     Dosage: 200 MILLIGRAM, 2X/DAY (BID)
     Route: 048
  2. BRIVARACETAM [Suspect]
     Active Substance: BRIVARACETAM
     Indication: Epilepsy
     Dosage: 200 MILLIGRAM, 2X/DAY (BID)
     Route: 048
  3. BRIVARACETAM [Suspect]
     Active Substance: BRIVARACETAM
     Dosage: 100 MILLIGRAM, 2X/DAY (BID)/50MG-2 TAB (100MG) BID
     Route: 048
     Dates: start: 20221001

REACTIONS (5)
  - Therapy interrupted [Unknown]
  - Product availability issue [Unknown]
  - Seizure [Not Recovered/Not Resolved]
  - Off label use [Unknown]
  - Product distribution issue [Unknown]
